FAERS Safety Report 6289309-7 (Version None)
Quarter: 2009Q3

REPORT INFORMATION
  Report Type: 
  Country: None (occurrence: None)
  Receive Date: 20090730
  Receipt Date: 20090721
  Transmission Date: 20100115
  Serious: Yes (Other)
  Sender: FDA-Public Use
  Company Number: US-BIOGENIDEC-2006BI015677

PATIENT
  Age: 30 Year
  Sex: Female

DRUGS (5)
  1. DILAUDID [Concomitant]
     Indication: DRUG USE FOR UNKNOWN INDICATION
  2. AVONEX [Suspect]
     Indication: MULTIPLE SCLEROSIS
     Route: 030
     Dates: start: 19960704, end: 20030801
  3. AVONEX [Suspect]
     Route: 030
     Dates: start: 20030802
  4. ZOVIA 1/35E-21 [Concomitant]
     Indication: DRUG USE FOR UNKNOWN INDICATION
  5. ELAVIL [Concomitant]
     Indication: DRUG USE FOR UNKNOWN INDICATION

REACTIONS (6)
  - ALANINE AMINOTRANSFERASE INCREASED [None]
  - ANTIMITOCHONDRIAL ANTIBODY POSITIVE [None]
  - BILIARY CIRRHOSIS PRIMARY [None]
  - HEPATIC STEATOSIS [None]
  - LIVER FUNCTION TEST ABNORMAL [None]
  - OEDEMA PERIPHERAL [None]
